FAERS Safety Report 12669644 (Version 1)
Quarter: 2016Q3

REPORT INFORMATION
  Report Type: Spontaneous
  Country: FI (occurrence: FI)
  Receive Date: 20160819
  Receipt Date: 20160819
  Transmission Date: 20161109
  Serious: Yes (Life-Threatening, Hospitalization)
  Sender: FDA-Public Use
  Company Number: FI-TEVA-680152ISR

PATIENT
  Age: 66 Year
  Sex: Female

DRUGS (9)
  1. NABUPENT 300MG [Concomitant]
     Indication: LUNG INFECTION
     Dosage: INHALATION EVERY 4 WEEKS
     Route: 055
     Dates: start: 20160401
  2. PEGORION [Concomitant]
     Indication: CONSTIPATION
     Dosage: 24 GRAM DAILY;
     Route: 048
     Dates: start: 20160303
  3. OLANZAPINE ACCORD [Concomitant]
     Indication: SEDATION
     Dosage: 5 MILLIGRAM DAILY;
     Route: 048
  4. TEMOZOLAMID RATIOPHARM 100MG [Suspect]
     Active Substance: TEMOZOLOMIDE
     Indication: NEOPLASM MALIGNANT
     Dosage: 120 MILLIGRAM DAILY;
     Route: 048
     Dates: start: 20160407, end: 20160520
  5. LEVETIRACETAM 500MG [Concomitant]
     Active Substance: LEVETIRACETAM
     Indication: EPILEPSY
     Dosage: 1000 MILLIGRAM DAILY; 2 TABLETS DAILY
     Route: 048
     Dates: start: 20160308
  6. SOMAC 40 MG [Concomitant]
     Indication: DYSPEPSIA
     Dosage: 40 MILLIGRAM DAILY;
     Route: 048
     Dates: start: 20160222
  7. TEMESTA 1 MG [Concomitant]
     Indication: SEDATION
     Dosage: 1 MILLIGRAM DAILY;
     Route: 048
     Dates: start: 20160318
  8. DEXAMETASON 1,5 MG [Concomitant]
     Indication: BRAIN OEDEMA
     Dosage: 3 MILLIGRAM DAILY; 2 TABLETS DAILY
     Route: 048
     Dates: start: 20160613
  9. CALCICHEW D3 FORTE [Concomitant]
     Active Substance: CALCIUM\CHOLECALCIFEROL
     Indication: OSTEOPOROSIS
     Dosage: 2 TABLET DAILY; 1000 MG CALCIUM AND 10 MCG VITAMIN D
     Route: 048
     Dates: start: 20160222

REACTIONS (7)
  - Pancytopenia [Not Recovered/Not Resolved]
  - Leukopenia [Not Recovered/Not Resolved]
  - Infection [Not Recovered/Not Resolved]
  - Thrombocytopenia [Not Recovered/Not Resolved]
  - Neutropenia [Not Recovered/Not Resolved]
  - Dyspnoea [None]
  - Bone marrow failure [Unknown]

NARRATIVE: CASE EVENT DATE: 20160516
